FAERS Safety Report 4584910-0 (Version None)
Quarter: 2005Q1

REPORT INFORMATION
  Report Type: 
  Country: None (occurrence: None)
  Receive Date: 20050217
  Receipt Date: 20041110
  Transmission Date: 20050727
  Serious: Yes (Other)
  Sender: FDA-Public Use
  Company Number: US-GLAXOSMITHKLINE-A0533448A

PATIENT
  Sex: Female

DRUGS (9)
  1. WELLBUTRIN [Suspect]
     Indication: DEPRESSION
     Dosage: 300MG PER DAY
     Route: 048
  2. PAXIL [Suspect]
     Indication: DRUG USE FOR UNKNOWN INDICATION
  3. PLAQUENIL [Concomitant]
  4. COUMADIN [Concomitant]
  5. AVINZA [Concomitant]
  6. TOPAMAX [Concomitant]
  7. VALIUM [Concomitant]
  8. LASIX [Concomitant]
  9. BENADRYL [Concomitant]

REACTIONS (2)
  - LEUKOPENIA [None]
  - TRANSAMINASES INCREASED [None]
